FAERS Safety Report 13298906 (Version 2)
Quarter: 2017Q2

REPORT INFORMATION
  Report Type: Spontaneous
  Country: US (occurrence: US)
  Receive Date: 20170306
  Receipt Date: 20170508
  Transmission Date: 20170830
  Serious: Yes (Death, Hospitalization)
  Sender: FDA-Public Use
  Company Number: US-JNJFOC-20170304675

PATIENT
  Age: 63 Year
  Sex: Male

DRUGS (2)
  1. XARELTO [Suspect]
     Active Substance: RIVAROXABAN
     Indication: PULMONARY EMBOLISM
     Dosage: 15MG TABLET TWICE DAILY FOR 21 DAYS AND THEREAFTER 20MG ONCE DAILY
     Route: 048
     Dates: start: 20150112, end: 20160219
  2. XARELTO [Suspect]
     Active Substance: RIVAROXABAN
     Indication: THROMBOSIS
     Dosage: 15MG TABLET TWICE DAILY FOR 21 DAYS AND THEREAFTER 20MG ONCE DAILY
     Route: 048
     Dates: start: 20150112, end: 20160219

REACTIONS (1)
  - Blood urine present [Unknown]

NARRATIVE: CASE EVENT DATE: 20160219
